FAERS Safety Report 26102907 (Version 2)
Quarter: 2025Q4

REPORT INFORMATION
  Report Type: Spontaneous
  Country: US (occurrence: US)
  Receive Date: 20251128
  Receipt Date: 20251204
  Transmission Date: 20260118
  Serious: No
  Sender: ABBVIE
  Company Number: US-ABBVIE-6568406

PATIENT
  Age: 39 Year
  Sex: Male
  Weight: 81.647 kg

DRUGS (2)
  1. LINZESS [Suspect]
     Active Substance: LINACLOTIDE
     Indication: Dysphagia
     Dosage: 72 MICROGRAM
     Route: 048
     Dates: start: 202511, end: 202511
  2. LINZESS [Suspect]
     Active Substance: LINACLOTIDE
     Indication: Dysphagia
     Dosage: UNKNOWN
     Route: 048

REACTIONS (4)
  - Haematochezia [Recovered/Resolved]
  - Exposure via ingestion [Not Recovered/Not Resolved]
  - Product desiccant issue [Not Recovered/Not Resolved]
  - Diarrhoea [Recovered/Resolved]

NARRATIVE: CASE EVENT DATE: 20251101
